FAERS Safety Report 7167551-0 (Version None)
Quarter: 2010Q4

REPORT INFORMATION
  Report Type: 
  Country: None (occurrence: None)
  Receive Date: 20101216
  Receipt Date: 20100326
  Transmission Date: 20110411
  Serious: No
  Sender: FDA-Public Use
  Company Number: A0852126A

PATIENT
  Age: 55 Year
  Sex: Female

DRUGS (1)
  1. NICOTINE POLACRILEX [Suspect]
     Indication: TOBACCO USER
     Dates: start: 20100305, end: 20100319

REACTIONS (6)
  - DRUG ADMINISTRATION ERROR [None]
  - HYPOAESTHESIA ORAL [None]
  - LIP DISCOLOURATION [None]
  - LIP PAIN [None]
  - LIP SWELLING [None]
  - RASH [None]
